FAERS Safety Report 4926626-4 (Version None)
Quarter: 2006Q1

REPORT INFORMATION
  Report Type: 
  Country: None (occurrence: None)
  Receive Date: 20060228
  Receipt Date: 20050512
  Transmission Date: 20060701
  Serious: Yes (Life-Threatening, Hospitalization, Disabling, Other)
  Sender: FDA-Public Use
  Company Number: US-GLAXOSMITHKLINE-A0558365A

PATIENT
  Age: 47 Year
  Sex: Male

DRUGS (4)
  1. LAMICTAL [Suspect]
     Indication: BIPOLAR DISORDER
     Route: 048
  2. ASPIRIN [Suspect]
  3. ALCOHOL [Concomitant]
  4. CRACK COCAINE [Concomitant]

REACTIONS (3)
  - OVERDOSE [None]
  - RASH [None]
  - RENAL FAILURE ACUTE [None]
